FAERS Safety Report 23973671 (Version 4)
Quarter: 2025Q2

REPORT INFORMATION
  Report Type: Spontaneous
  Country: US (occurrence: None)
  Receive Date: 20240613
  Receipt Date: 20250604
  Transmission Date: 20250717
  Serious: Yes (Hospitalization, Other)
  Sender: MDD OPERATIONS
  Company Number: US-MDD US Operations-MDD202403-000892

PATIENT
  Age: 57 Year
  Sex: Male

DRUGS (4)
  1. APOKYN [Suspect]
     Active Substance: APOMORPHINE HYDROCHLORIDE
     Indication: Parkinson^s disease
     Route: 058
  2. APOKYN [Suspect]
     Active Substance: APOMORPHINE HYDROCHLORIDE
     Indication: On and off phenomenon
     Route: 058
  3. APOKYN [Suspect]
     Active Substance: APOMORPHINE HYDROCHLORIDE
     Dosage: APOKYN (5 X 3ML)
     Route: 058
     Dates: start: 202405
  4. APOKYN [Suspect]
     Active Substance: APOMORPHINE HYDROCHLORIDE

REACTIONS (23)
  - Intervertebral disc protrusion [Unknown]
  - Nerve compression [Recovered/Resolved]
  - Hospitalisation [Unknown]
  - Freezing phenomenon [Not Recovered/Not Resolved]
  - Sciatica [Not Recovered/Not Resolved]
  - Tremor [Not Recovered/Not Resolved]
  - Pain [Unknown]
  - Movement disorder [Unknown]
  - Disease progression [Unknown]
  - Freezing phenomenon [Unknown]
  - Back pain [Unknown]
  - Condition aggravated [Unknown]
  - On and off phenomenon [Unknown]
  - Ear discomfort [Recovering/Resolving]
  - Hypoacusis [Recovering/Resolving]
  - Spinal pain [Recovering/Resolving]
  - Musculoskeletal stiffness [Recovered/Resolved]
  - Fall [Not Recovered/Not Resolved]
  - Fall [Unknown]
  - Fall [Unknown]
  - Fall [Recovering/Resolving]
  - Therapeutic product effect decreased [Unknown]
  - Therapy cessation [Unknown]

NARRATIVE: CASE EVENT DATE: 20240101
